FAERS Safety Report 8485401-7 (Version None)
Quarter: 2012Q3

REPORT INFORMATION
  Report Type: 
  Country: None (occurrence: None)
  Receive Date: 20120703
  Receipt Date: 20120628
  Transmission Date: 20120928
  Serious: Yes (Other)
  Sender: FDA-Public Use
  Company Number: PHHY2011CA76722

PATIENT
  Sex: Female

DRUGS (5)
  1. AFINITOR [Suspect]
     Dosage: 05 MG, UNK
     Dates: start: 20111028
  2. SANDOSTATIN LAR [Suspect]
     Indication: PANCREATIC NEUROENDOCRINE TUMOUR
     Dosage: 20 MG ONCE A MONTH
     Route: 030
     Dates: start: 20110808
  3. ELAVIL [Concomitant]
     Dosage: 10 MG, BID
  4. CODEINE SYRUP [Concomitant]
  5. AFINITOR [Suspect]
     Indication: PANCREATIC NEUROENDOCRINE TUMOUR
     Dosage: 10 MG, DAILY
     Route: 048
     Dates: start: 20110817

REACTIONS (25)
  - LACRIMATION INCREASED [None]
  - SWELLING FACE [None]
  - HYPERGLYCAEMIA [None]
  - FATIGUE [None]
  - PYREXIA [None]
  - ORAL MUCOSAL ERYTHEMA [None]
  - OCULAR HYPERAEMIA [None]
  - INJECTION SITE PRURITUS [None]
  - WEIGHT DECREASED [None]
  - INSOMNIA [None]
  - PARAESTHESIA [None]
  - ERYTHEMA [None]
  - COUGH [None]
  - ABDOMINAL PAIN UPPER [None]
  - INFLUENZA LIKE ILLNESS [None]
  - INJECTION SITE ERYTHEMA [None]
  - ABDOMINAL PAIN [None]
  - DYSPEPSIA [None]
  - DIARRHOEA [None]
  - HEADACHE [None]
  - SECRETION DISCHARGE [None]
  - ABSCESS ORAL [None]
  - ABDOMINAL DISTENSION [None]
  - ACNE [None]
  - VOMITING [None]
